FAERS Safety Report 12507333 (Version 1)
Quarter: 2016Q2

REPORT INFORMATION
  Report Type: Spontaneous
  Country: DK (occurrence: DK)
  Receive Date: 20160629
  Receipt Date: 20160629
  Transmission Date: 20160815
  Serious: Yes (Death, Other)
  Sender: FDA-Public Use
  Company Number: DK-ACCORD-041815

PATIENT
  Age: 35 Year
  Sex: Male

DRUGS (7)
  1. GEMCITABINE/GEMCITABINE HYDROCHLORIDE [Suspect]
     Active Substance: GEMCITABINE\GEMCITABINE HYDROCHLORIDE
     Indication: DUCTAL ADENOCARCINOMA OF PANCREAS
     Route: 065
  2. CISPLATIN. [Suspect]
     Active Substance: CISPLATIN
     Indication: DUCTAL ADENOCARCINOMA OF PANCREAS
     Dosage: TREATMENT ATTEMPT WITH SINGLE-DRUG CISPLATIN
     Route: 065
  3. OXALIPLATIN. [Suspect]
     Active Substance: OXALIPLATIN
     Indication: DUCTAL ADENOCARCINOMA OF PANCREAS
     Dosage: FOLFIRINOX: EIGHT CYCLES WITH SUSTAINED PERFORMANCE STATUS (PS)
     Route: 065
  4. NAB-PACLITAXEL [Suspect]
     Active Substance: PACLITAXEL
     Indication: DUCTAL ADENOCARCINOMA OF PANCREAS
     Dosage: AT REDUCED DOSE
  5. FLUOROURACIL. [Suspect]
     Active Substance: FLUOROURACIL
     Indication: DUCTAL ADENOCARCINOMA OF PANCREAS
     Dosage: FOLFIRINOX: EIGHT CYCLES WITH SUSTAINED PERFORMANCE STATUS (PS)
     Route: 065
  6. IRINOTECAN [Suspect]
     Active Substance: IRINOTECAN
     Indication: DUCTAL ADENOCARCINOMA OF PANCREAS
     Dosage: FOLFIRINOX: EIGHT CYCLES WITH SUSTAINED PERFORMANCE STATUS (PS)
     Route: 065
  7. FOLINIC ACID [Suspect]
     Active Substance: LEUCOVORIN
     Indication: DUCTAL ADENOCARCINOMA OF PANCREAS
     Dosage: FOLFIRINOX: EIGHT CYCLES WITH SUSTAINED PERFORMANCE STATUS (PS)
     Route: 065

REACTIONS (5)
  - Malignant neoplasm progression [None]
  - Therapeutic response decreased [Unknown]
  - Disease progression [Fatal]
  - Ductal adenocarcinoma of pancreas [None]
  - Off label use [Unknown]
